FAERS Safety Report 8576677-6 (Version None)
Quarter: 2012Q3

REPORT INFORMATION
  Report Type: 
  Country: None (occurrence: None)
  Receive Date: 20120807
  Receipt Date: 20120112
  Transmission Date: 20120928
  Serious: Yes (Hospitalization)
  Sender: FDA-Public Use
  Company Number: US-ROCHE-1097617

PATIENT
  Sex: Female

DRUGS (3)
  1. XOLAIR [Suspect]
     Indication: ASTHMA
     Dates: start: 20040101
  2. PREDNISONE [Concomitant]
  3. SINGULAIR [Concomitant]

REACTIONS (1)
  - ASTHMA [None]
